FAERS Safety Report 19259772 (Version 1)
Quarter: 2021Q2

REPORT INFORMATION
  Report Type: Spontaneous
  Country: US (occurrence: US)
  Receive Date: 20210514
  Receipt Date: 20210514
  Transmission Date: 20210717
  Serious: Yes (Other)
  Sender: FDA-Public Use
  Company Number: US-PFIZER INC-2018222985

PATIENT
  Age: 37 Year
  Sex: Female

DRUGS (3)
  1. LYRICA [Suspect]
     Active Substance: PREGABALIN
     Indication: GUILLAIN-BARRE SYNDROME
     Dosage: 150 MG, 2X/DAY
     Route: 048
     Dates: start: 201605
  2. LYRICA [Suspect]
     Active Substance: PREGABALIN
     Dosage: 150 MG, 2X/DAY
     Route: 048
     Dates: start: 201710, end: 201712
  3. LYRICA [Suspect]
     Active Substance: PREGABALIN
     Dosage: 200 G, 2X/DAY

REACTIONS (3)
  - Drug dependence [Unknown]
  - Product prescribing error [Unknown]
  - Off label use [Unknown]

NARRATIVE: CASE EVENT DATE: 201605
